FAERS Safety Report 11835446 (Version 1)
Quarter: 2015Q4

REPORT INFORMATION
  Report Type: Spontaneous
  Country: US (occurrence: US)
  Receive Date: 20151215
  Receipt Date: 20151215
  Transmission Date: 20160305
  Serious: Yes (Other)
  Sender: FDA-Public Use
  Company Number: US-SUN PHARMACEUTICAL INDUSTRIES LTD-2015US-107934

PATIENT
  Age: 22 Year
  Sex: Male

DRUGS (3)
  1. OMALIZUMAB [Concomitant]
     Active Substance: OMALIZUMAB
     Indication: ASTHMA
     Dosage: UNK
     Route: 065
  2. PREDNISONE. [Suspect]
     Active Substance: PREDNISONE
     Indication: EOSINOPHILIC OESOPHAGITIS
     Dosage: 1 MG, DAILY
     Route: 065
  3. BUDESONIDE. [Concomitant]
     Active Substance: BUDESONIDE
     Indication: EOSINOPHILIC OESOPHAGITIS
     Dosage: UNK
     Route: 048

REACTIONS (4)
  - Cushingoid [Unknown]
  - Skin striae [Unknown]
  - Adrenal suppression [Unknown]
  - Weight increased [Unknown]
